FAERS Safety Report 8082159-0 (Version None)
Quarter: 2012Q1

REPORT INFORMATION
  Report Type: 
  Country: None (occurrence: None)
  Receive Date: 20120127
  Receipt Date: 20110121
  Transmission Date: 20120608
  Serious: No
  Sender: FDA-Public Use
  Company Number: US-ABBOTT-11P-163-0699938-00

PATIENT
  Age: 51 Year
  Sex: Female

DRUGS (15)
  1. HUMIRA [Suspect]
     Indication: PSORIASIS
     Dates: start: 20100301, end: 20101201
  2. ACTOS [Concomitant]
     Indication: DIABETES MELLITUS
  3. SAVILLA [Concomitant]
     Indication: FIBROMYALGIA
  4. HYDROCODONE BITARTRATE [Concomitant]
     Indication: PAIN
  5. ABILIFY [Concomitant]
     Indication: BIPOLAR DISORDER
  6. PRAVACHOL [Concomitant]
     Indication: BLOOD CHOLESTEROL ABNORMAL
  7. REMERON [Concomitant]
     Indication: INSOMNIA
  8. NIASPAN [Concomitant]
     Indication: BLOOD CHOLESTEROL INCREASED
  9. ATENOLOL [Concomitant]
     Indication: PROPHYLAXIS
  10. ARTANE [Concomitant]
     Indication: ANXIETY
  11. AMBIEN [Concomitant]
     Indication: INSOMNIA
  12. ATENOLOL [Concomitant]
     Indication: RENAL DISORDER
  13. DECLAN [Concomitant]
     Indication: DEPRESSION
  14. VITAMIN D [Concomitant]
     Indication: PRODUCT USED FOR UNKNOWN INDICATION
  15. CYMBALTA [Concomitant]
     Indication: BIPOLAR DISORDER

REACTIONS (6)
  - PSORIASIS [None]
  - SKIN EXFOLIATION [None]
  - WOUND HAEMORRHAGE [None]
  - RASH VESICULAR [None]
  - DRUG EFFECT DECREASED [None]
  - WOUND COMPLICATION [None]
